FAERS Safety Report 16499819 (Version 3)
Quarter: 2019Q3

REPORT INFORMATION
  Report Type: Spontaneous
  Country: JP (occurrence: JP)
  Receive Date: 20190701
  Receipt Date: 20190826
  Transmission Date: 20191004
  Serious: Yes (Hospitalization, Other)
  Sender: FDA-Public Use
  Company Number: JP-TEVA-2019-JP-1071031

PATIENT
  Age: 69 Year
  Sex: Female

DRUGS (11)
  1. BAYASPIRIN [Concomitant]
     Active Substance: ASPIRIN
     Dates: start: 20180914
  2. BI SIFROL [Concomitant]
     Active Substance: PRAMIPEXOLE
     Dates: start: 20180914
  3. DOPS [Concomitant]
     Active Substance: DROXIDOPA
     Dates: start: 20180926
  4. VESICARE [Concomitant]
     Active Substance: SOLIFENACIN SUCCINATE
     Dates: start: 20180914
  5. DOPACOL [Concomitant]
     Active Substance: CARBIDOPA\LEVODOPA
     Dates: start: 20180914
  6. AZILECT [Suspect]
     Active Substance: RASAGILINE MESYLATE
     Indication: PARKINSONISM
     Dosage: .5 MILLIGRAM DAILY;
     Route: 048
     Dates: start: 20180914
  7. ROZEREM [Concomitant]
     Active Substance: RAMELTEON
     Dates: start: 20190516
  8. COMTAN [Concomitant]
     Active Substance: ENTACAPONE
     Dates: start: 20180914
  9. MIRAPEX [Concomitant]
     Active Substance: PRAMIPEXOLE DIHYDROCHLORIDE
     Dates: start: 20180914
  10. TRERIEF [Concomitant]
     Active Substance: ZONISAMIDE
     Dates: start: 20180914
  11. DESYREL [Concomitant]
     Active Substance: TRAZODONE HYDROCHLORIDE
     Dates: start: 20180914

REACTIONS (2)
  - Femur fracture [Not Recovered/Not Resolved]
  - Fall [Unknown]

NARRATIVE: CASE EVENT DATE: 20190527
